FAERS Safety Report 7061493-7 (Version None)
Quarter: 2010Q4

REPORT INFORMATION
  Report Type: 
  Country: None (occurrence: None)
  Receive Date: 20101026
  Receipt Date: 20101015
  Transmission Date: 20110411
  Serious: Yes (Hospitalization)
  Sender: FDA-Public Use
  Company Number: JP-NOVOPROD-315913

PATIENT
  Age: 63 Year
  Sex: Female
  Weight: 153 kg

DRUGS (12)
  1. VICTOZA [Suspect]
     Indication: TYPE 2 DIABETES MELLITUS
     Dosage: 0.3 MG, QD
     Route: 058
     Dates: start: 20100910, end: 20100924
  2. VICTOZA [Suspect]
     Dosage: 0.6 MG, QD
     Route: 058
     Dates: start: 20100924, end: 20100925
  3. INSULIN LISPRO [Concomitant]
     Dosage: 14 U, QD
     Dates: start: 20101014
  4. INSULIN LISPRO [Concomitant]
     Dosage: 22 UNK, QD
     Dates: start: 20101001, end: 20101014
  5. INSULIN LISPRO [Concomitant]
     Dosage: 24 U, QD
     Dates: end: 20100910
  6. INSULIN GLARGINE [Concomitant]
     Dosage: 12 U, QD
     Dates: start: 20101014
  7. INSULIN GLARGINE [Concomitant]
     Dosage: 14 UNK, QD
     Dates: start: 20101001, end: 20101014
  8. INSULIN GLARGINE [Concomitant]
     Dosage: 10 U, QD
     Dates: end: 20100910
  9. METFORMIN [Concomitant]
     Dosage: 750 MG, QD
     Dates: start: 20101001
  10. METFORMIN [Concomitant]
     Dosage: 750 MG, QD
     Dates: end: 20100910
  11. PIOGLITAZONE [Concomitant]
     Dosage: 7.5 MG, QD
     Dates: start: 20101001
  12. PIOGLITAZONE [Concomitant]
     Dosage: 7.5 MG, QD
     Dates: end: 20100910

REACTIONS (5)
  - ABDOMINAL DISCOMFORT [None]
  - CONSTIPATION [None]
  - DIABETIC KETOACIDOSIS [None]
  - NAUSEA [None]
  - VOMITING [None]
